FAERS Safety Report 9329146 (Version 1)
Quarter: 2013Q2

REPORT INFORMATION
  Report Type: Spontaneous
  Country: US (occurrence: US)
  Receive Date: 20130604
  Receipt Date: 20130604
  Transmission Date: 20140414
  Serious: No
  Sender: FDA-Public Use
  Company Number: US-SANOFI-AVENTIS-2012SA077988

PATIENT
  Age: 68 Year
  Sex: Female

DRUGS (4)
  1. LANTUS SOLOSTAR [Suspect]
     Indication: TYPE 2 DIABETES MELLITUS
     Dosage: PRODUCT START DATE MENTIONED AS 6 YEARS AGO DOSE:40 UNIT(S)
     Route: 058
     Dates: start: 2006
  2. SOLOSTAR [Suspect]
     Indication: TYPE 2 DIABETES MELLITUS
     Dosage: PRODUCT START DATE MENTIONED AS 6 YEARS AGO
     Dates: start: 2006
  3. HYDROCHLOROTHIAZIDE [Concomitant]
     Dates: start: 20120924
  4. CLONIDINE [Concomitant]
     Dates: start: 20120924

REACTIONS (2)
  - Hypertension [Not Recovered/Not Resolved]
  - Palpitations [Not Recovered/Not Resolved]
